FAERS Safety Report 5167784-9 (Version None)
Quarter: 2006Q4

REPORT INFORMATION
  Report Type: 
  Country: None (occurrence: None)
  Receive Date: 20061208
  Receipt Date: 20061130
  Transmission Date: 20070319
  Serious: Yes (Hospitalization)
  Sender: FDA-Public Use
  Company Number: 2006UW26890

PATIENT
  Sex: Male
  Weight: 3.9 kg

DRUGS (2)
  1. SYMBICORT [Suspect]
     Indication: ASTHMA
     Dosage: 6/200 MCG
     Route: 055
     Dates: start: 20060701
  2. AEROLIN [Concomitant]
     Indication: ASTHMA

REACTIONS (5)
  - DRUG EXPOSURE DURING PREGNANCY [None]
  - HYPOGLYCAEMIA NEONATAL [None]
  - ILL-DEFINED DISORDER [None]
  - MECONIUM IN AMNIOTIC FLUID [None]
  - NEONATAL RESPIRATORY DISTRESS SYNDROME [None]
